FAERS Safety Report 11150476 (Version 1)
Quarter: 2015Q2

REPORT INFORMATION
  Report Type: Report from Study
  Country: AU (occurrence: AU)
  Receive Date: 20150601
  Receipt Date: 20150601
  Transmission Date: 20150821
  Serious: Yes (Other)
  Sender: FDA-Public Use
  Company Number: AU-ROCHE-1561163

PATIENT
  Sex: Female

DRUGS (1)
  1. ACTEMRA [Suspect]
     Active Substance: TOCILIZUMAB
     Indication: RHEUMATOID ARTHRITIS
     Dosage: CEASED
     Route: 042
     Dates: start: 20150120, end: 20150413

REACTIONS (3)
  - Depression [Recovered/Resolved]
  - Emotional distress [Not Recovered/Not Resolved]
  - Decreased appetite [Not Recovered/Not Resolved]
